FAERS Safety Report 14620127 (Version 2)
Quarter: 2019Q1

REPORT INFORMATION
  Report Type: Spontaneous
  Country: US (occurrence: US)
  Receive Date: 20180309
  Receipt Date: 20190219
  Transmission Date: 20190417
  Serious: Yes (Hospitalization, Other)
  Sender: FDA-Public Use
  Company Number: US-SA-2018SA064763

PATIENT
  Age: 52 Year
  Sex: Female

DRUGS (1)
  1. SEVELAMER SALT NOT SPECIFIED [Suspect]
     Active Substance: SEVELAMER
     Indication: END STAGE RENAL DISEASE
     Dosage: 2400 MG,UNK
     Route: 065

REACTIONS (5)
  - Haematochezia [Recovering/Resolving]
  - Haemoglobin decreased [Recovering/Resolving]
  - Large intestinal ulcer [Recovering/Resolving]
  - Crystal deposit intestine [Unknown]
  - Colitis [Unknown]
